FAERS Safety Report 5942330-8 (Version None)
Quarter: 2008Q4

REPORT INFORMATION
  Report Type: 
  Country: None (occurrence: None)
  Receive Date: 20081105
  Receipt Date: 20081030
  Transmission Date: 20090506
  Serious: Yes (Other)
  Sender: FDA-Public Use
  Company Number: US-CELGENEUS-163-21880-08091003

PATIENT
  Sex: Male

DRUGS (2)
  1. REVLIMID [Suspect]
     Route: 048
     Dates: start: 20080815
  2. VELCADE [Concomitant]
     Indication: DRUG USE FOR UNKNOWN INDICATION
     Route: 065

REACTIONS (3)
  - ARRHYTHMIA [None]
  - INFLUENZA LIKE ILLNESS [None]
  - WHITE BLOOD CELL COUNT INCREASED [None]
